FAERS Safety Report 8099767-3 (Version None)
Quarter: 2012Q1

REPORT INFORMATION
  Report Type: 
  Country: None (occurrence: None)
  Receive Date: 20120129
  Receipt Date: 20111010
  Transmission Date: 20120608
  Serious: No
  Sender: FDA-Public Use
  Company Number: US-ABBOTT-11P-163-0855598-00

PATIENT
  Sex: Female

DRUGS (2)
  1. HUMIRA [Suspect]
     Indication: RHEUMATOID ARTHRITIS
     Dosage: ONE PEN EVERY TWO WEEKS
     Route: 058
     Dates: start: 20110301
  2. HUMIRA [Suspect]
     Route: 058
     Dates: start: 20110301

REACTIONS (2)
  - INFLUENZA LIKE ILLNESS [None]
  - FATIGUE [None]
